FAERS Safety Report 7772418-0 (Version None)
Quarter: 2011Q3

REPORT INFORMATION
  Report Type: 
  Country: None (occurrence: None)
  Receive Date: 20110922
  Receipt Date: 20110912
  Transmission Date: 20111222
  Serious: Yes (Other)
  Sender: FDA-Public Use
  Company Number: RU-TEVA-301823ISR

PATIENT
  Age: 57 Year
  Sex: Female

DRUGS (1)
  1. HYDROXYUREA [Suspect]
     Route: 048

REACTIONS (1)
  - ANGIOEDEMA [None]
